FAERS Safety Report 8314901-5 (Version None)
Quarter: 2012Q2

REPORT INFORMATION
  Report Type: 
  Country: None (occurrence: None)
  Receive Date: 20120426
  Receipt Date: 20120417
  Transmission Date: 20120825
  Serious: Yes (Other)
  Sender: FDA-Public Use
  Company Number: FR-JNJFOC-20120401113

PATIENT
  Sex: Female
  Weight: 73 kg

DRUGS (5)
  1. ZOLPIDEM TARTRATE [Concomitant]
     Route: 065
     Dates: start: 20111201
  2. VALSARTAN [Concomitant]
     Indication: HYPERTENSION
     Route: 048
     Dates: start: 20111001
  3. STELARA [Suspect]
     Indication: PSORIASIS
     Route: 058
     Dates: start: 20120222
  4. ESCITALOPRAM [Concomitant]
     Indication: DEPRESSION
     Route: 048
     Dates: start: 20080101
  5. LEVOTHYROXINE SODIUM [Concomitant]
     Indication: HYPOTHYROIDISM
     Route: 048
     Dates: start: 19990101

REACTIONS (2)
  - WEIGHT INCREASED [None]
  - EMOTIONAL DISORDER [None]
